FAERS Safety Report 14574482 (Version 1)
Quarter: 2018Q1

REPORT INFORMATION
  Report Type: Spontaneous
  Country: US (occurrence: US)
  Receive Date: 20180224
  Receipt Date: 20180224
  Transmission Date: 20180509
  Serious: Yes (Other)
  Sender: FDA-Public Use
  Company Number: None

PATIENT
  Sex: Female
  Weight: 63.9 kg

DRUGS (20)
  1. MULTI VITAMIN [Concomitant]
     Active Substance: VITAMINS
  2. BILBERRY [Concomitant]
     Active Substance: BILBERRY
  3. TUMERIC [Concomitant]
     Active Substance: HERBALS\TURMERIC
  4. GARLIC. [Concomitant]
     Active Substance: GARLIC
  5. ALPHA LIPOIC ACID [Concomitant]
     Active Substance: .ALPHA.-LIPOIC ACID
  6. CITRACAL [Concomitant]
     Active Substance: CALCIUM CITRATE
  7. FLAX SEE POWDER AND OIL [Concomitant]
  8. ANACIN NOS [Concomitant]
     Active Substance: ACETAMINOPHEN OR ACETAMINOPHEN\ASPIRIN\CAFFEINE OR ASPIRIN\CAFFEINE
  9. NAC [Concomitant]
  10. AMLODIPINE BESYLATE 5MGS,GENERIC FOR NORVASC [Suspect]
     Active Substance: AMLODIPINE BESYLATE
     Indication: BLOOD PRESSURE INCREASED
     Dosage: ?          QUANTITY:1 TABLET(S);?
     Route: 048
     Dates: start: 20100710, end: 20180210
  11. MICARDIS [Concomitant]
     Active Substance: TELMISARTAN
  12. EZORB CALCIUM POWDER [Concomitant]
  13. HAWTHORN [Concomitant]
     Active Substance: CRATAEGUS LAEVIGATA FRUIT
  14. COCONUT OIL [Concomitant]
     Active Substance: COCONUT OIL
  15. MILK THISTLE [Concomitant]
     Active Substance: DIETARY SUPPLEMENT\HERBALS\MILK THISTLE
  16. BLACK SEED OIL [Concomitant]
  17. LUTEIN [Concomitant]
     Active Substance: LUTEIN
  18. CINNAMON. [Concomitant]
     Active Substance: CINNAMON
  19. VIRMAX [Concomitant]
  20. HERBS [Concomitant]
     Active Substance: HERBALS

REACTIONS (7)
  - Tooth disorder [None]
  - Stomatitis [None]
  - Weight decreased [None]
  - Tongue erythema [None]
  - Glossodynia [None]
  - Ageusia [None]
  - Gingival disorder [None]

NARRATIVE: CASE EVENT DATE: 20171110
